FAERS Safety Report 11508049 (Version 1)
Quarter: 2015Q3

REPORT INFORMATION
  Report Type: Spontaneous
  Country: US (occurrence: US)
  Receive Date: 20150903
  Receipt Date: 20150903
  Transmission Date: 20151125
  Serious: No
  Sender: FDA-Public Use
  Company Number: US-ELI_LILLY_AND_COMPANY-US200910005459

PATIENT
  Age: 66 Year
  Sex: Male

DRUGS (20)
  1. HUMALOG [Suspect]
     Active Substance: INSULIN LISPRO
     Dosage: 55 U, UNK
     Dates: start: 2007
  2. LANTUS [Concomitant]
     Active Substance: INSULIN GLARGINE
  3. GLUCOPHAGE [Concomitant]
     Active Substance: METFORMIN HYDROCHLORIDE
  4. LOTREL [Concomitant]
     Active Substance: AMLODIPINE BESYLATE\BENAZEPRIL HYDROCHLORIDE
  5. ZETIA [Concomitant]
     Active Substance: EZETIMIBE
  6. LOPRESSOR [Concomitant]
     Active Substance: METOPROLOL TARTRATE
  7. VITAMIN B6 [Concomitant]
     Active Substance: PYRIDOXINE HYDROCHLORIDE
  8. TRICOR [Concomitant]
     Active Substance: FENOFIBRATE
  9. MULTIVITAMIN [Concomitant]
     Active Substance: VITAMINS
  10. FOLIC ACID. [Concomitant]
     Active Substance: FOLIC ACID
  11. HUMALOG [Suspect]
     Active Substance: INSULIN LISPRO
     Dosage: 55 U, UNK
  12. ISOSORBIDE MONONITRATE. [Concomitant]
     Active Substance: ISOSORBIDE MONONITRATE
  13. FLOMAX [Concomitant]
     Active Substance: TAMSULOSIN HYDROCHLORIDE
  14. PLAVIX [Concomitant]
     Active Substance: CLOPIDOGREL BISULFATE
  15. ASPIRIN. [Concomitant]
     Active Substance: ASPIRIN
     Dosage: 375 MG, UNK
  16. VITAMIN C [Concomitant]
     Active Substance: ASCORBIC ACID
  17. CO-Q10 [Concomitant]
  18. TYLENOL ARTHRITIS PAIN [Concomitant]
     Active Substance: ACETAMINOPHEN
     Dosage: UNK, 2/D
  19. TEKTURNA /01763601/ [Concomitant]
  20. LIPITOR [Concomitant]
     Active Substance: ATORVASTATIN CALCIUM
     Dosage: 60 MG, UNK

REACTIONS (3)
  - Incorrect dose administered [Recovered/Resolved]
  - Intentional device misuse [Recovered/Resolved]
  - Weight increased [Not Recovered/Not Resolved]

NARRATIVE: CASE EVENT DATE: 2007
